FAERS Safety Report 4544098-9 (Version None)
Quarter: 2005Q1

REPORT INFORMATION
  Report Type: 
  Country: None (occurrence: None)
  Receive Date: 20050104
  Receipt Date: 20041224
  Transmission Date: 20050727
  Serious: Yes (Other)
  Sender: FDA-Public Use
  Company Number: JP-JNJFOC-20041203266

PATIENT
  Age: 52 Year
  Sex: Male

DRUGS (13)
  1. TAVANIC [Suspect]
     Dosage: ROUTE OF ADMINSTRATION: ORAL
     Dates: start: 20011115, end: 20011120
  2. TAVANIC [Suspect]
     Dosage: ROUTE OF ADMINISTRATION: INTRAVENOUS
     Dates: start: 20011115, end: 20011120
  3. MEDROL [Concomitant]
     Dosage: ORAL
     Dates: start: 20011109, end: 20011119
  4. MEDROL [Concomitant]
     Dosage: INTRAVENOUS
     Dates: start: 20011109, end: 20011119
  5. VIBRA-TABS [Concomitant]
     Indication: PROSTATITIS
  6. DIFLUCAN [Concomitant]
     Indication: DUODENITIS
  7. DIFLUCAN [Concomitant]
     Indication: OESOPHAGITIS
  8. SCHERIPROCT [Concomitant]
  9. SCHERIPROCT [Concomitant]
  10. SCHERIPROCT [Concomitant]
  11. SCHERIPROCT [Concomitant]
  12. SANDOGLOBULIN [Concomitant]
  13. LOSEC [Concomitant]

REACTIONS (4)
  - JOINT SPRAIN [None]
  - POST-TRAUMATIC OSTEOPOROSIS [None]
  - TENDON RUPTURE [None]
  - TREATMENT NONCOMPLIANCE [None]
